FAERS Safety Report 5820346-X (Version None)
Quarter: 2008Q3

REPORT INFORMATION
  Report Type: 
  Country: None (occurrence: None)
  Receive Date: 20080724
  Receipt Date: 20070612
  Transmission Date: 20090109
  Serious: No
  Sender: FDA-Public Use
  Company Number: A0655269A

PATIENT
  Age: 68 Year
  Sex: Male

DRUGS (6)
  1. AVANDIA [Suspect]
     Dosage: 1TAB TWICE PER DAY
     Route: 048
  2. METFORMIN [Concomitant]
  3. LIPITOR [Concomitant]
  4. ZETIA [Concomitant]
  5. CARDIZEM [Concomitant]
  6. HEART MEDICATION [Concomitant]

REACTIONS (3)
  - FEELING ABNORMAL [None]
  - IRRITABILITY [None]
  - MOOD ALTERED [None]
